FAERS Safety Report 7348370-9 (Version None)
Quarter: 2011Q1

REPORT INFORMATION
  Report Type: 
  Country: None (occurrence: None)
  Receive Date: 20110311
  Receipt Date: 20110303
  Transmission Date: 20110831
  Serious: Yes (Hospitalization, Other)
  Sender: FDA-Public Use
  Company Number: US-MERCK-1101USA00144

PATIENT
  Age: 82 Year
  Sex: Female

DRUGS (2)
  1. FOSAMAX PLUS D [Suspect]
     Indication: OSTEOPENIA
     Route: 048
     Dates: start: 20050101, end: 20100101
  2. FOSAMAX [Suspect]
     Indication: OSTEOPENIA
     Route: 048
     Dates: start: 20030101, end: 20050101

REACTIONS (14)
  - EXOSTOSIS [None]
  - ARTHROPATHY [None]
  - SCIATICA [None]
  - ORAL TORUS [None]
  - LOOSE TOOTH [None]
  - GINGIVAL ABSCESS [None]
  - BRONCHITIS [None]
  - OSTEONECROSIS OF JAW [None]
  - OSTEOMYELITIS [None]
  - TOOTH FRACTURE [None]
  - RESTLESS LEGS SYNDROME [None]
  - DENTAL CARIES [None]
  - ASTHMA [None]
  - BLOOD CHOLESTEROL INCREASED [None]
